FAERS Safety Report 26198845 (Version 1)
Quarter: 2025Q4

REPORT INFORMATION
  Report Type: Spontaneous
  Country: US (occurrence: US)
  Receive Date: 20251225
  Receipt Date: 20251225
  Transmission Date: 20260118
  Serious: Yes (Hospitalization)
  Sender: TEVA
  Company Number: US-TEVA-VS-3403667

PATIENT
  Age: 19 Year
  Sex: Female

DRUGS (1)
  1. FENTANYL [Suspect]
     Active Substance: FENTANYL
     Indication: Substance use disorder
     Dosage: DRUG MIXED WITH XYLAZINE
     Route: 042

REACTIONS (8)
  - Wound necrosis [Recovering/Resolving]
  - Hyperhidrosis [Unknown]
  - Substance abuse [Unknown]
  - Abscess limb [Recovering/Resolving]
  - Anxiety [Unknown]
  - Tremor [Unknown]
  - Feeling jittery [Unknown]
  - Cellulitis [Recovering/Resolving]
